FAERS Safety Report 22285972 (Version 1)
Quarter: 2023Q2

REPORT INFORMATION
  Report Type: Report from Study
  Country: CA (occurrence: CA)
  Receive Date: 20230505
  Receipt Date: 20230505
  Transmission Date: 20230722
  Serious: Yes (Hospitalization)
  Sender: FDA-Public Use
  Company Number: CA-ABBVIE-4749853

PATIENT
  Sex: Female

DRUGS (1)
  1. SKYRIZI [Suspect]
     Active Substance: RISANKIZUMAB-RZAA
     Indication: Psoriasis
     Route: 058
     Dates: start: 20210913

REACTIONS (4)
  - Road traffic accident [Unknown]
  - Skin laceration [Unknown]
  - Upper limb fracture [Unknown]
  - Rib fracture [Unknown]

NARRATIVE: CASE EVENT DATE: 20230101
